FAERS Safety Report 7412580-2 (Version None)
Quarter: 2011Q2

REPORT INFORMATION
  Report Type: 
  Country: None (occurrence: None)
  Receive Date: 20110413
  Receipt Date: 20101019
  Transmission Date: 20111010
  Serious: Yes (Hospitalization, Other)
  Sender: FDA-Public Use
  Company Number: US-BAYER-201029952NA

PATIENT
  Age: 35 Year
  Sex: Female
  Weight: 83 kg

DRUGS (10)
  1. PROZAC [Concomitant]
  2. WARFARIN [Concomitant]
  3. YAZ [Suspect]
     Indication: MENSTRUAL CYCLE MANAGEMENT
     Route: 048
     Dates: start: 20090501, end: 20090715
  4. ASCORBIC ACID [Concomitant]
  5. MOTRIN [Concomitant]
  6. FLUOXETINE [Concomitant]
     Dosage: UNK
     Dates: start: 20060101
  7. HERBAL PREPARATION [Concomitant]
  8. METFORMIN [Concomitant]
     Dosage: UNK
     Dates: start: 20070101
  9. OXYCODONE [Concomitant]
  10. OXYCONTIN [Concomitant]

REACTIONS (6)
  - DEEP VEIN THROMBOSIS [None]
  - MENTAL DISORDER [None]
  - PAIN IN EXTREMITY [None]
  - PULMONARY EMBOLISM [None]
  - DYSPNOEA [None]
  - OEDEMA PERIPHERAL [None]
